FAERS Safety Report 6469515-9 (Version None)
Quarter: 2009Q4

REPORT INFORMATION
  Report Type: 
  Country: None (occurrence: None)
  Receive Date: 20091203
  Receipt Date: 20091127
  Transmission Date: 20100525
  Serious: Yes (Other)
  Sender: FDA-Public Use
  Company Number: BR-PFIZER INC-2009303353

PATIENT
  Age: 22 Year
  Sex: Female
  Weight: 65 kg

DRUGS (3)
  1. DEPO-PROVERA [Suspect]
     Indication: CONTRACEPTION
     Dosage: 150 MG, EVERY 3 MONTHS
     Route: 030
     Dates: start: 20060301
  2. NOVALGINA [Concomitant]
     Indication: MIGRAINE
     Dosage: UNK
  3. PROPRANOLOL [Concomitant]
     Indication: MIGRAINE
     Dosage: UNK

REACTIONS (7)
  - FATIGUE [None]
  - FEELING ABNORMAL [None]
  - METRORRHAGIA [None]
  - MIGRAINE [None]
  - NAUSEA [None]
  - SOMNOLENCE [None]
  - VOMITING [None]
